FAERS Safety Report 7126779-6 (Version None)
Quarter: 2010Q4

REPORT INFORMATION
  Report Type: 
  Country: None (occurrence: None)
  Receive Date: 20101129
  Receipt Date: 20091029
  Transmission Date: 20110411
  Serious: No
  Sender: FDA-Public Use
  Company Number: US-PFIZER INC-2009291959

PATIENT
  Sex: Male
  Weight: 90.7 kg

DRUGS (3)
  1. VIAGRA [Suspect]
     Indication: ERECTILE DYSFUNCTION
     Dosage: 50 MG, AS NEEDED
     Route: 048
     Dates: start: 20091023
  2. SOMA [Concomitant]
     Indication: INTERVERTEBRAL DISC PROTRUSION
  3. SOMA [Concomitant]
     Indication: MUSCLE SPASMS

REACTIONS (2)
  - DRUG INEFFECTIVE [None]
  - STRESS [None]
